FAERS Safety Report 5387691-6 (Version None)
Quarter: 2007Q3

REPORT INFORMATION
  Report Type: 
  Country: None (occurrence: None)
  Receive Date: 20070712
  Receipt Date: 20070712
  Transmission Date: 20080115
  Serious: No
  Sender: FDA-Public Use
  Company Number: None

PATIENT
  Sex: Female
  Weight: 78.9 kg

DRUGS (1)
  1. TEMOZOLOMIDE [Suspect]

REACTIONS (5)
  - DEHYDRATION [None]
  - GAIT DISTURBANCE [None]
  - HEMIPARESIS [None]
  - NAUSEA [None]
  - VOMITING [None]
